FAERS Safety Report 13398608 (Version 2)
Quarter: 2017Q2

REPORT INFORMATION
  Report Type: Spontaneous
  Country: US (occurrence: US)
  Receive Date: 20170403
  Receipt Date: 20170421
  Transmission Date: 20170830
  Serious: Yes (Death, Hospitalization)
  Sender: FDA-Public Use
  Company Number: US-UNITED THERAPEUTICS-UNT-2017-004377

PATIENT
  Age: 67 Year
  Sex: Female
  Weight: 46.71 kg

DRUGS (1)
  1. REMODULIN [Suspect]
     Active Substance: TREPROSTINIL
     Indication: PULMONARY HYPERTENSION
     Dosage: 0.030 ?G/KG, CONTINUING
     Route: 058
     Dates: start: 20161206

REACTIONS (4)
  - Septic shock [Fatal]
  - Pilonidal cyst [Fatal]
  - Respiratory distress [Unknown]
  - Cardiogenic shock [Fatal]

NARRATIVE: CASE EVENT DATE: 20170323
